FAERS Safety Report 14763235 (Version 3)
Quarter: 2018Q2

REPORT INFORMATION
  Report Type: Spontaneous
  Country: DE (occurrence: DE)
  Receive Date: 20180416
  Receipt Date: 20180525
  Transmission Date: 20180711
  Serious: Yes (Hospitalization)
  Sender: FDA-Public Use
  Company Number: PHHY2018DE066012

PATIENT
  Age: 67 Year
  Sex: Male

DRUGS (1)
  1. ENTRESTO [Suspect]
     Active Substance: SACUBITRIL\VALSARTAN
     Indication: CARDIAC FAILURE
     Dosage: 200 MG, UNK (97/103 MG)
     Route: 048
     Dates: start: 20160506

REACTIONS (3)
  - Sinus tachycardia [Recovered/Resolved]
  - Hyperfibrinogenaemia [Recovering/Resolving]
  - Hyperhomocysteinaemia [Recovering/Resolving]

NARRATIVE: CASE EVENT DATE: 20170720
